FAERS Safety Report 9286895 (Version 1)
Quarter: 2013Q2

REPORT INFORMATION
  Report Type: Spontaneous
  Country: US (occurrence: US)
  Receive Date: 20130513
  Receipt Date: 20130513
  Transmission Date: 20140414
  Serious: Yes (Other)
  Sender: FDA-Public Use
  Company Number: CHPA2013US008071

PATIENT
  Age: 57 Year
  Sex: Female

DRUGS (2)
  1. EXCEDRIN ES BACK + BODY [Suspect]
     Indication: NECK PAIN
     Dosage: 2 DF, BID
     Route: 048
     Dates: start: 2003
  2. EXCEDRIN ES BACK + BODY [Suspect]
     Indication: BACK PAIN

REACTIONS (2)
  - Arthropathy [Unknown]
  - Expired drug administered [Unknown]
